FAERS Safety Report 7571794-1 (Version None)
Quarter: 2011Q2

REPORT INFORMATION
  Report Type: 
  Country: None (occurrence: None)
  Receive Date: 20110624
  Receipt Date: 20110608
  Transmission Date: 20111010
  Serious: No
  Sender: FDA-Public Use
  Company Number: US-B.I. PHARMACEUTICALS,INC./RIDGEFIELD-2011-BP-14954BP

PATIENT
  Sex: Female

DRUGS (11)
  1. SPIRIVA [Suspect]
     Indication: CHRONIC OBSTRUCTIVE PULMONARY DISEASE
     Dosage: 18 MCG
     Route: 055
     Dates: start: 20110301
  2. LIPITOR [Concomitant]
     Indication: BLOOD CHOLESTEROL INCREASED
     Dosage: 10 MG
     Route: 048
     Dates: start: 20110501
  3. FLAXSEED OIL [Concomitant]
     Indication: ROUTINE HEALTH MAINTENANCE
     Route: 048
     Dates: start: 20060101
  4. M.V.I. [Concomitant]
     Indication: ROUTINE HEALTH MAINTENANCE
     Route: 048
     Dates: start: 20060101
  5. ALBUTEROL [Concomitant]
     Indication: COLLAPSE OF LUNG
     Route: 055
     Dates: start: 20110301
  6. AVINZA [Concomitant]
     Indication: NERVE INJURY
     Route: 048
     Dates: start: 20110601
  7. NAPROXEN (ALEVE) [Concomitant]
     Indication: OSTEOARTHRITIS
     Dosage: 440 MG
     Route: 048
     Dates: start: 20060101
  8. ADVAIR DISKUS 100/50 [Concomitant]
     Indication: COLLAPSE OF LUNG
     Route: 055
     Dates: start: 20110301
  9. LEVOXYL [Concomitant]
     Indication: THYROID DISORDER
     Route: 048
     Dates: start: 20060101
  10. B2 [Concomitant]
     Indication: ROUTINE HEALTH MAINTENANCE
     Route: 048
     Dates: start: 20060101
  11. VITAMIN B-12 [Concomitant]
     Indication: ROUTINE HEALTH MAINTENANCE
     Route: 048
     Dates: start: 20060101

REACTIONS (1)
  - TREMOR [None]
